FAERS Safety Report 5672003-0 (Version None)
Quarter: 2008Q1

REPORT INFORMATION
  Report Type: 
  Country: None (occurrence: None)
  Receive Date: 20080317
  Receipt Date: 20080317
  Transmission Date: 20080703
  Serious: Yes (Life-Threatening)
  Sender: FDA-Public Use
  Company Number: None

PATIENT
  Age: 14 Year
  Sex: Female
  Weight: 55.8 kg

DRUGS (8)
  1. CYCLOPHOSPHAMIDE [Suspect]
     Indication: NEURILEMMOMA MALIGNANT
     Dosage: 100MG QD PO
     Route: 048
     Dates: start: 20071221, end: 20080110
  2. CYCLOPHOSPHAMIDE [Suspect]
     Indication: NEURILEMMOMA MALIGNANT
     Dosage: 100MG QD PO
     Route: 048
     Dates: start: 20080201, end: 20080208
  3. THALIDOMIDE [Concomitant]
  4. CELEBREX [Concomitant]
  5. FENOFIBRATE [Concomitant]
  6. ETOPOSIDE [Concomitant]
  7. NEURONTIN [Concomitant]
  8. LYRICA [Concomitant]

REACTIONS (3)
  - NEUTROPHIL COUNT ABNORMAL [None]
  - SINUSITIS [None]
  - UPPER RESPIRATORY TRACT INFECTION [None]
